FAERS Safety Report 5602536-4 (Version None)
Quarter: 2008Q1

REPORT INFORMATION
  Report Type: 
  Country: None (occurrence: None)
  Receive Date: 20080125
  Receipt Date: 20080123
  Transmission Date: 20080703
  Serious: Yes (Hospitalization)
  Sender: FDA-Public Use
  Company Number: B0504740A

PATIENT
  Age: 9 Year
  Sex: Male
  Weight: 16 kg

DRUGS (3)
  1. MODACIN [Suspect]
     Indication: PERITONITIS
     Dosage: 33.3MG THREE TIMES PER DAY
     Route: 042
     Dates: start: 20080101, end: 20080115
  2. MEROPEN [Concomitant]
     Indication: DRUG USE FOR UNKNOWN INDICATION
     Route: 042
  3. PERITONEAL DIALYSIS [Concomitant]

REACTIONS (2)
  - DEPRESSED LEVEL OF CONSCIOUSNESS [None]
  - DRUG LEVEL INCREASED [None]
